FAERS Safety Report 18148413 (Version 4)
Quarter: 2021Q1

REPORT INFORMATION
  Report Type: Spontaneous
  Country: US (occurrence: US)
  Receive Date: 20200814
  Receipt Date: 20210112
  Transmission Date: 20210419
  Serious: No
  Sender: FDA-Public Use
  Company Number: US-GLAXOSMITHKLINE-US2020AMR153319

PATIENT
  Sex: Female

DRUGS (3)
  1. ZEJULA [Suspect]
     Active Substance: NIRAPARIB
     Dosage: 100 MG, QD
     Dates: end: 20201031
  2. ZEJULA [Suspect]
     Active Substance: NIRAPARIB
     Indication: OVARIAN CANCER
     Dosage: UNK (100 MG)
     Dates: start: 201903
  3. ZEJULA [Suspect]
     Active Substance: NIRAPARIB
     Dosage: 100 MG, QD
     Dates: start: 20201103

REACTIONS (7)
  - White blood cell count decreased [Not Recovered/Not Resolved]
  - Thinking abnormal [Unknown]
  - Neutrophil count decreased [Unknown]
  - Cognitive disorder [Unknown]
  - Social problem [Unknown]
  - Insomnia [Recovered/Resolved]
  - Headache [Recovered/Resolved]
